FAERS Safety Report 9602401 (Version 2)
Quarter: 2013Q4

REPORT INFORMATION
  Report Type: Spontaneous
  Country: IT (occurrence: IT)
  Receive Date: 20131007
  Receipt Date: 20131009
  Transmission Date: 20140711
  Serious: Yes (Hospitalization)
  Sender: FDA-Public Use
  Company Number: PHHY2013IT111181

PATIENT
  Age: 53 Year
  Sex: Female

DRUGS (3)
  1. VOLTAREN [Suspect]
     Dosage: 15 DF, TOTAL
     Route: 048
     Dates: start: 20130512, end: 20130512
  2. LORAZEPAM [Suspect]
     Dosage: 10 DF, TOTAL
     Route: 048
     Dates: start: 20130512, end: 20130512
  3. RIABAL [Suspect]
     Dosage: 11 DF, TOTAL
     Route: 048
     Dates: start: 20130512, end: 20130512

REACTIONS (2)
  - Sopor [Recovering/Resolving]
  - Vomiting [Recovering/Resolving]
